FAERS Safety Report 7732523-1 (Version None)
Quarter: 2011Q3

REPORT INFORMATION
  Report Type: 
  Country: None (occurrence: None)
  Receive Date: 20110906
  Receipt Date: 20110902
  Transmission Date: 20111222
  Serious: Yes (Hospitalization)
  Sender: FDA-Public Use
  Company Number: IE-AMGEN-IRLSP2011038294

PATIENT
  Age: 72 Year
  Sex: Male

DRUGS (7)
  1. LANSOPRAZOLE [Concomitant]
  2. CRESTOR [Concomitant]
  3. ARANESP [Suspect]
     Indication: PRODUCT USED FOR UNKNOWN INDICATION
     Dosage: 20 MUG, Q2WK
     Route: 058
     Dates: start: 20110324
  4. FLOXACILLIN SODIUM [Concomitant]
  5. CLOPIDOGREL [Concomitant]
  6. CARDICOR [Concomitant]
  7. ASPIRIN [Concomitant]

REACTIONS (2)
  - MALAISE [None]
  - ASTHENIA [None]
